FAERS Safety Report 9421719 (Version 1)
Quarter: 2013Q3

REPORT INFORMATION
  Report Type: Spontaneous
  Country: US (occurrence: US)
  Receive Date: 20130726
  Receipt Date: 20130726
  Transmission Date: 20140515
  Serious: No
  Sender: FDA-Public Use
  Company Number: US-009507513-1307USA011413

PATIENT
  Sex: Female

DRUGS (1)
  1. NUVARING [Suspect]
     Dosage: ONE RING THREE WEEKS
     Route: 067
     Dates: start: 20130707

REACTIONS (2)
  - Incorrect product storage [Unknown]
  - No adverse event [Unknown]
